FAERS Safety Report 19806288 (Version 1)
Quarter: 2021Q3

REPORT INFORMATION
  Report Type: Spontaneous
  Country: JP (occurrence: JP)
  Receive Date: 20210909
  Receipt Date: 20210909
  Transmission Date: 20211014
  Serious: Yes (Hospitalization)
  Sender: FDA-Public Use
  Company Number: JP-009507513-2108JPN002652J

PATIENT
  Age: 86 Year
  Sex: Female
  Weight: 56 kg

DRUGS (8)
  1. CILNIDIPINE [Concomitant]
     Active Substance: CILNIDIPINE
     Route: 048
  2. GATIFLO [Concomitant]
     Active Substance: GATIFLOXACIN
     Route: 065
  3. PIRENOXINE [Concomitant]
     Active Substance: PIRENOXINE
     Route: 065
  4. OLMESARTAN OD [Concomitant]
     Active Substance: OLMESARTAN MEDOXOMIL
     Route: 048
  5. BAYASPIRIN [Concomitant]
     Active Substance: ASPIRIN
     Route: 048
  6. NEVANAC [Concomitant]
     Active Substance: NEPAFENAC
     Route: 065
  7. SANBETASON [Concomitant]
     Active Substance: DEXAMETHASONE
     Route: 065
  8. KEYTRUDA [Suspect]
     Active Substance: PEMBROLIZUMAB
     Indication: OESOPHAGEAL CARCINOMA
     Dosage: 200 MILLIGRAM, ONCE
     Route: 041
     Dates: start: 20210609, end: 20210609

REACTIONS (1)
  - Hepatic function abnormal [Recovered/Resolved]

NARRATIVE: CASE EVENT DATE: 20210629
